FAERS Safety Report 4386308-7 (Version None)
Quarter: 2004Q2

REPORT INFORMATION
  Report Type: 
  Country: None (occurrence: None)
  Receive Date: 20040625
  Receipt Date: 20040625
  Transmission Date: 20050107
  Serious: No
  Sender: FDA-Public Use
  Company Number: None

PATIENT
  Age: 47 Year
  Sex: Female
  Weight: 73.4827 kg

DRUGS (3)
  1. MIDAZOLAM HCL [Suspect]
     Indication: ENDOSCOPIC RETROGRADE CHOLANGIOPANCREATOGRAPHY
     Dosage: 8 MG IV
     Route: 042
     Dates: start: 20040505
  2. MIDAZOLAM HCL [Suspect]
     Indication: SEDATION
     Dosage: 8 MG IV
     Route: 042
     Dates: start: 20040505
  3. MEPERIDINE HCL [Suspect]
     Dosage: 100 MG IV
     Route: 042
     Dates: start: 20040505

REACTIONS (9)
  - ABDOMINAL PAIN [None]
  - BLOOD PRESSURE DECREASED [None]
  - HAEMATOCRIT DECREASED [None]
  - HAEMORRHAGE [None]
  - HYPERHIDROSIS [None]
  - OPERATIVE HAEMORRHAGE [None]
  - OXYGEN SATURATION DECREASED [None]
  - RESPIRATORY RATE INCREASED [None]
  - SEDATION [None]
